FAERS Safety Report 6879935-6 (Version None)
Quarter: 2010Q3

REPORT INFORMATION
  Report Type: 
  Country: None (occurrence: None)
  Receive Date: 20100728
  Receipt Date: 20100714
  Transmission Date: 20110219
  Serious: Yes (Hospitalization, Other)
  Sender: FDA-Public Use
  Company Number: PHHY2010JP46504

PATIENT
  Sex: Male

DRUGS (2)
  1. TEGRETOL [Suspect]
     Dosage: UNK
     Route: 048
     Dates: start: 20091218, end: 20100101
  2. CRAVIT [Concomitant]

REACTIONS (10)
  - ALOPECIA [None]
  - DRY SKIN [None]
  - ERYTHEMA [None]
  - HEARING IMPAIRED [None]
  - LYMPHADENOPATHY [None]
  - LYMPHOMA [None]
  - NAIL AVULSION [None]
  - PRURITUS [None]
  - PYREXIA [None]
  - SKIN EXFOLIATION [None]
